FAERS Safety Report 23127719 (Version 1)
Quarter: 2023Q4

REPORT INFORMATION
  Report Type: Spontaneous
  Country: US (occurrence: US)
  Receive Date: 20231031
  Receipt Date: 20231031
  Transmission Date: 20240109
  Serious: No
  Sender: FDA-Public Use
  Company Number: US-GLAXOSMITHKLINE-USCH2023051230

PATIENT

DRUGS (2)
  1. ADVIL PM NOS [Suspect]
     Active Substance: DIPHENHYDRAMINE\IBUPROFEN
     Indication: Headache
     Dosage: UNK
  2. ADVIL PM NOS [Suspect]
     Active Substance: DIPHENHYDRAMINE\IBUPROFEN
     Indication: Back pain

REACTIONS (2)
  - Drug effective for unapproved indication [Unknown]
  - Product use in unapproved indication [Unknown]
